FAERS Safety Report 25219527 (Version 2)
Quarter: 2025Q4

REPORT INFORMATION
  Report Type: Report from Study
  Country: JP (occurrence: JP)
  Receive Date: 20250421
  Receipt Date: 20251103
  Transmission Date: 20260118
  Serious: Yes (Other)
  Sender: UCB
  Company Number: JP-UCBJ-CD202411536UCBPHAPROD

PATIENT
  Age: 10 Year
  Weight: 20 kg

DRUGS (8)
  1. FENFLURAMINE HYDROCHLORIDE [Suspect]
     Active Substance: FENFLURAMINE HYDROCHLORIDE
     Indication: Lennox-Gastaut syndrome
     Dosage: 0.15 MILLIGRAM/KILOGRAM, 2X/DAY (BID)
  2. FENFLURAMINE HYDROCHLORIDE [Suspect]
     Active Substance: FENFLURAMINE HYDROCHLORIDE
     Dosage: 0.4 MILLIGRAM/KILOGRAM
  3. FENFLURAMINE HYDROCHLORIDE [Suspect]
     Active Substance: FENFLURAMINE HYDROCHLORIDE
     Dosage: 0.3 MILLIGRAM/KILOGRAM
  4. LEVETIRACETAM [Concomitant]
     Active Substance: LEVETIRACETAM
     Indication: Lennox-Gastaut syndrome
     Dosage: 600 MILLIGRAM, ONCE DAILY (QD)
  5. RIVOTRIL [Concomitant]
     Active Substance: CLONAZEPAM
     Indication: Lennox-Gastaut syndrome
     Dosage: 3 MILLIGRAM, ONCE DAILY (QD)
  6. LAMICTAL [Concomitant]
     Active Substance: LAMOTRIGINE
     Indication: Lennox-Gastaut syndrome
     Dosage: 70 MILLIGRAM, ONCE DAILY (QD)
  7. FYCOMPA [Concomitant]
     Active Substance: PERAMPANEL
     Indication: Lennox-Gastaut syndrome
     Dosage: 1 MILLIGRAM, ONCE DAILY (QD)
  8. DEPAKENE [Concomitant]
     Active Substance: VALPROIC ACID
     Indication: Lennox-Gastaut syndrome
     Dosage: UNK

REACTIONS (8)
  - Serotonin syndrome [Recovered/Resolved]
  - Epilepsy [Unknown]
  - Myoclonus [Recovered/Resolved]
  - Athetosis [Recovered/Resolved]
  - Decreased appetite [Recovering/Resolving]
  - Dyskinesia [Recovering/Resolving]
  - Prescribed overdose [Unknown]
  - Off label use [Unknown]
